FAERS Safety Report 25846844 (Version 2)
Quarter: 2025Q4

REPORT INFORMATION
  Report Type: Spontaneous
  Country: JP (occurrence: JP)
  Receive Date: 20250925
  Receipt Date: 20251031
  Transmission Date: 20260117
  Serious: Yes (Other)
  Sender: EMD SERONO INC
  Company Number: JP-Merck Healthcare KGaA-2025047433

PATIENT
  Age: 88 Year
  Sex: Male

DRUGS (1)
  1. TEPMETKO [Suspect]
     Active Substance: TEPOTINIB HYDROCHLORIDE
     Indication: Product used for unknown indication

REACTIONS (3)
  - Interstitial lung disease [Recovered/Resolved]
  - Anaemia [Not Recovered/Not Resolved]
  - Blood zinc decreased [Unknown]

NARRATIVE: CASE EVENT DATE: 20250821
